FAERS Safety Report 9156875 (Version 1)
Quarter: 2013Q1

REPORT INFORMATION
  Report Type: Spontaneous
  Country: BR (occurrence: BR)
  Receive Date: 20130312
  Receipt Date: 20130312
  Transmission Date: 20140127
  Serious: Yes (Other)
  Sender: FDA-Public Use
  Company Number: PHHY2013BR023314

PATIENT
  Sex: Male

DRUGS (5)
  1. GALVUS [Suspect]
     Indication: DIABETES MELLITUS
     Dosage: 2 DF, DAILY (50 MG)
     Route: 048
  2. DIOVAN AMLO FIX [Suspect]
     Indication: HYPERTENSION
     Dosage: 1 DF(VAL 160MG, AMLO 5MG),DAILY
     Route: 048
  3. CRESTOR [Concomitant]
     Indication: BLOOD CHOLESTEROL INCREASED
     Dosage: 5 MG, DAILY
     Route: 048
  4. GLIFAGE [Concomitant]
     Indication: DIABETES MELLITUS
     Dosage: 2000 MG, DAILY AT NIGHT
     Route: 048
  5. ASPIRINA PREVENT [Concomitant]
     Indication: CEREBROVASCULAR ACCIDENT PROPHYLAXIS
     Dosage: 1 DF, DAILY
     Route: 048

REACTIONS (1)
  - Vascular injury [Not Recovered/Not Resolved]
